FAERS Safety Report 12137511 (Version 2)
Quarter: 2016Q1

REPORT INFORMATION
  Report Type: Spontaneous
  Country: FR (occurrence: FR)
  Receive Date: 20160302
  Receipt Date: 20160317
  Transmission Date: 20160526
  Serious: Yes (Death, Other)
  Sender: FDA-Public Use
  Company Number: PHHY2016FR025305

PATIENT
  Age: 90 Year
  Sex: Female

DRUGS (6)
  1. AMOXICILLIN-CLAVULANIC ACID [Suspect]
     Active Substance: AMOXICILLIN\CLAVULANIC ACID
     Indication: SUPERINFECTION
  2. CEFTRIAXONE. [Suspect]
     Active Substance: CEFTRIAXONE
     Indication: PROTEUS TEST POSITIVE
     Dosage: 2 G, PER DAY
     Route: 065
  3. AMOXICILLIN-CLAVULANIC ACID [Suspect]
     Active Substance: AMOXICILLIN\CLAVULANIC ACID
     Indication: BRONCHITIS
     Route: 065
  4. METRONIDAZOLE HCL [Concomitant]
     Active Substance: METRONIDAZOLE HYDROCHLORIDE
     Indication: SUPERINFECTION
  5. GENTAMICIN. [Suspect]
     Active Substance: GENTAMICIN
     Indication: PRODUCT USED FOR UNKNOWN INDICATION
     Route: 065
  6. METRONIDAZOLE HCL [Concomitant]
     Active Substance: METRONIDAZOLE HYDROCHLORIDE
     Indication: BRONCHITIS
     Dosage: 1.5 G PER DAY
     Route: 065

REACTIONS (5)
  - Phlebitis deep [Unknown]
  - Abscess [Unknown]
  - Drug ineffective [Unknown]
  - Pemphigoid [Fatal]
  - Eosinophilia [Unknown]
